FAERS Safety Report 9032608 (Version 1)
Quarter: 2013Q1

REPORT INFORMATION
  Report Type: Spontaneous
  Country: US (occurrence: None)
  Receive Date: 20130109
  Receipt Date: 20130109
  Transmission Date: 20140127
  Serious: Yes (Hospitalization)
  Sender: FDA-Public Use
  Company Number: VAL_01242_2013

PATIENT
  Sex: Female

DRUGS (5)
  1. LOPRESSOR (NOT SPECIFIED) [Suspect]
     Indication: HYPERTENSION
     Dosage: (DF) (DOSE WAS DECREASED IN HALF)
  2. LEVEMIR (NOT SPECIFIED) [Suspect]
     Indication: DIABETES MELLITUS
  3. NOVOLOG (NOT SPECIFIED) [Suspect]
     Indication: DIABETES MELLITUS
  4. DIURETICS (UNKNOWN) [Concomitant]
  5. ORGANIC NITRATES (UNKNOWN) [Concomitant]

REACTIONS (7)
  - Fall [None]
  - Joint injury [None]
  - Malaise [None]
  - Presyncope [None]
  - Blood urea increased [None]
  - Blood creatinine increased [None]
  - Arthralgia [None]
